FAERS Safety Report 13819214 (Version 1)
Quarter: 2017Q3

REPORT INFORMATION
  Report Type: Spontaneous
  Country: US (occurrence: US)
  Receive Date: 20170731
  Receipt Date: 20170731
  Transmission Date: 20171127
  Serious: Yes (Hospitalization)
  Sender: FDA-Public Use
  Company Number: None

PATIENT
  Age: 13 Year
  Sex: Male

DRUGS (1)
  1. PULMOZYME [Suspect]
     Active Substance: DORNASE ALFA
     Indication: CHRONIC RESPIRATORY FAILURE
     Dates: start: 20161222

REACTIONS (2)
  - Granuloma [None]
  - Drug dose omission [None]

NARRATIVE: CASE EVENT DATE: 20170710
